FAERS Safety Report 4679368-7 (Version None)
Quarter: 2005Q2

REPORT INFORMATION
  Report Type: 
  Country: None (occurrence: None)
  Receive Date: 20050602
  Receipt Date: 20041203
  Transmission Date: 20051028
  Serious: Yes (Other)
  Sender: FDA-Public Use
  Company Number: GB-GLAXOSMITHKLINE-B0361421A

PATIENT
  Sex: Female

DRUGS (10)
  1. PAROXETINE HYDROCHLORIDE [Suspect]
     Route: 065
  2. DOTHIEPIN HYDROCHLORIDE [Concomitant]
  3. DIAZEPAM [Concomitant]
  4. ZIMOVANE [Concomitant]
  5. MIRTAZAPINE [Concomitant]
  6. SERTRALINE HCL [Concomitant]
     Route: 065
  7. LORATADINE [Concomitant]
  8. ZOPICLONE [Concomitant]
  9. SALMETEROL + FLUTICASONE [Concomitant]
  10. BUDESONIDE [Concomitant]

REACTIONS (27)
  - AGGRESSION [None]
  - AMNESIA [None]
  - ANXIETY [None]
  - ARTHRALGIA [None]
  - BALANCE DISORDER [None]
  - BRUXISM [None]
  - COORDINATION ABNORMAL [None]
  - DISTURBANCE IN ATTENTION [None]
  - FATIGUE [None]
  - GROIN ABSCESS [None]
  - HEARING IMPAIRED [None]
  - ILL-DEFINED DISORDER [None]
  - LOSS OF LIBIDO [None]
  - MEMORY IMPAIRMENT [None]
  - MOOD SWINGS [None]
  - MUSCLE SPASMS [None]
  - NAUSEA [None]
  - POLLAKIURIA [None]
  - POLYMENORRHOEA [None]
  - PSYCHIATRIC SYMPTOM [None]
  - RESTLESSNESS [None]
  - SALIVARY DUCT OBSTRUCTION [None]
  - SLEEP DISORDER [None]
  - SNORING [None]
  - STRESS [None]
  - TEMPERATURE INTOLERANCE [None]
  - TENSION [None]
